FAERS Safety Report 10627526 (Version 4)
Quarter: 2015Q1

REPORT INFORMATION
  Report Type: Report from Study
  Country: GB (occurrence: GB)
  Receive Date: 20141205
  Receipt Date: 20150202
  Transmission Date: 20150720
  Serious: Yes (Hospitalization)
  Sender: FDA-Public Use
  Company Number: GB-ROCHE-1432308

PATIENT
  Age: 64 Year
  Sex: Female
  Weight: 72.4 kg

DRUGS (8)
  1. METFORMIN HYDROCHLORIDE. [Concomitant]
     Active Substance: METFORMIN HYDROCHLORIDE
     Route: 065
  2. DEXAMETHASONE. [Concomitant]
     Active Substance: DEXAMETHASONE
     Route: 065
     Dates: start: 20120412
  3. GLICLAZIDE [Concomitant]
     Active Substance: GLICLAZIDE
  4. LEVOTHYROXIN [Concomitant]
     Active Substance: LEVOTHYROXINE
  5. BEVACIZUMAB [Suspect]
     Active Substance: BEVACIZUMAB
     Indication: COLORECTAL CANCER METASTATIC
     Dosage: MOST RECENT DOSE PRIOR TO AE 02/AUG/2013
     Route: 065
     Dates: start: 20130710, end: 20130802
  6. RAMIPRIL. [Concomitant]
     Active Substance: RAMIPRIL
  7. AFLIBERCEPT [Concomitant]
     Active Substance: AFLIBERCEPT
     Route: 065
     Dates: start: 20130912
  8. ONDANSETRON [Concomitant]
     Active Substance: ONDANSETRON
     Route: 065
     Dates: start: 20120412

REACTIONS (3)
  - Ulcer [Not Recovered/Not Resolved]
  - Diarrhoea [Recovered/Resolved]
  - Deep vein thrombosis [Not Recovered/Not Resolved]

NARRATIVE: CASE EVENT DATE: 20131127
